FAERS Safety Report 7202695-6 (Version None)
Quarter: 2010Q4

REPORT INFORMATION
  Report Type: 
  Country: None (occurrence: None)
  Receive Date: 20101220
  Receipt Date: 20101203
  Transmission Date: 20110411
  Serious: Yes (Hospitalization)
  Sender: FDA-Public Use
  Company Number: 8046979

PATIENT
  Sex: Male
  Weight: 57.5 kg

DRUGS (7)
  1. CERTOLIZUMAB PEGOL (CERTOLIZUMAB PEGOL) [Suspect]
     Indication: RHEUMATOID ARTHRITIS
     Dosage: 200 MG 1X/2 WEEKS; SUBCUTANEOUS
     Route: 058
     Dates: start: 20090109
  2. PREDNISOLONE [Suspect]
     Indication: RHEUMATOID ARTHRITIS
     Dosage: 5 MG ORAL
     Route: 048
     Dates: start: 20090207
  3. PREDNISOLONE [Suspect]
     Indication: RHEUMATOID ARTHRITIS
     Dosage: 3 MG ORAL
     Route: 048
     Dates: start: 20090310
  4. PROGRAF [Suspect]
     Indication: RHEUMATOID ARTHRITIS
     Dosage: 2 MG QD, ORAL; 2 MG DAILY, ORAL;
     Route: 048
     Dates: start: 20081212, end: 20090519
  5. PROGRAF [Suspect]
     Indication: RHEUMATOID ARTHRITIS
     Dosage: 2 MG QD, ORAL; 2 MG DAILY, ORAL;
     Route: 048
     Dates: start: 20090525
  6. LOXOPROFEN SODIUM [Concomitant]
  7. RABEPRAZOLE SODIUM [Concomitant]

REACTIONS (2)
  - HAEMATOCHEZIA [None]
  - ILEITIS [None]
